FAERS Safety Report 6046353-2 (Version None)
Quarter: 2009Q1

REPORT INFORMATION
  Report Type: 
  Country: None (occurrence: None)
  Receive Date: 20090122
  Receipt Date: 20090115
  Transmission Date: 20090719
  Serious: Yes (Hospitalization)
  Sender: FDA-Public Use
  Company Number: FR-WYE-G02939609

PATIENT
  Sex: Male

DRUGS (7)
  1. ADVIL LIQUI-GELS [Suspect]
     Dosage: 2 TABLETS IN ONE SINGLE DOSE
     Route: 048
     Dates: start: 20081101, end: 20081101
  2. FILIPENDULA ULMARIA [Suspect]
     Indication: SNORING
     Dosage: ONE SINGLE DOSE
     Dates: start: 20081101, end: 20081101
  3. SERESTA [Concomitant]
     Dosage: UNKNOWN
     Route: 048
  4. AOTAL [Concomitant]
     Dosage: UNKNOWN
     Route: 048
  5. IMOVANE [Concomitant]
     Dosage: UNKNOWN
     Route: 048
  6. PHOSPHATIDYL CHOLINE [Suspect]
     Indication: SNORING
     Dosage: ONE SINGLE DOSE
     Dates: start: 20081101, end: 20081101
  7. EMEPRONIUM CARRAGEENATE [Suspect]
     Indication: SNORING
     Dosage: ONE SINGLE DOSE
     Dates: start: 20081101, end: 20081101

REACTIONS (3)
  - ABDOMINAL PAIN LOWER [None]
  - COLITIS ULCERATIVE [None]
  - ENTEROCOLITIS HAEMORRHAGIC [None]
